FAERS Safety Report 5492478-X (Version None)
Quarter: 2007Q4

REPORT INFORMATION
  Report Type: 
  Country: None (occurrence: None)
  Receive Date: 20071015
  Receipt Date: 20070730
  Transmission Date: 20080405
  Serious: No
  Sender: FDA-Public Use
  Company Number: 2007SP002677

PATIENT
  Age: 58 Year
  Sex: Female
  Weight: 61.2356 kg

DRUGS (3)
  1. LUNESTA [Suspect]
     Indication: SLEEP DISORDER
     Dosage: 2 MG;HS;ORAL, 1 MG;1X;ORAL
     Route: 048
     Dates: start: 20070730, end: 20070730
  2. LUNESTA [Suspect]
     Indication: SLEEP DISORDER
     Dosage: 2 MG;HS;ORAL, 1 MG;1X;ORAL
     Route: 048
     Dates: start: 20070728
  3. VASOTEC [Concomitant]

REACTIONS (2)
  - DRUG INEFFECTIVE [None]
  - INITIAL INSOMNIA [None]
